FAERS Safety Report 21495544 (Version 2)
Quarter: 2022Q4

REPORT INFORMATION
  Report Type: Report from Study
  Country: JP (occurrence: JP)
  Receive Date: 20221022
  Receipt Date: 20221222
  Transmission Date: 20230112
  Serious: Yes (Other)
  Sender: FDA-Public Use
  Company Number: JP-ABBVIE-4170428

PATIENT
  Age: 66 Year
  Sex: Female
  Weight: 53 kg

DRUGS (18)
  1. VENCLEXTA [Suspect]
     Active Substance: VENETOCLAX
     Indication: Acute myeloid leukaemia
     Route: 048
     Dates: start: 20210429, end: 20210815
  2. VENCLEXTA [Suspect]
     Active Substance: VENETOCLAX
     Indication: Acute myeloid leukaemia
     Route: 048
     Dates: start: 20210428, end: 20210428
  3. VENCLEXTA [Suspect]
     Active Substance: VENETOCLAX
     Indication: Acute myeloid leukaemia
     Dosage: APR 2021 LAST ADMIN DATE
     Route: 048
     Dates: start: 20210426
  4. MAGNESIUM OXIDE [Concomitant]
     Active Substance: MAGNESIUM OXIDE
     Indication: Acute myeloid leukaemia
     Route: 048
     Dates: start: 20210426, end: 20210903
  5. MAGNESIUM OXIDE [Concomitant]
     Active Substance: MAGNESIUM OXIDE
     Indication: Acute myeloid leukaemia
     Route: 048
     Dates: start: 20210426, end: 20210903
  6. RABEPRAZOLE SODIUM [Concomitant]
     Active Substance: RABEPRAZOLE SODIUM
     Indication: Acute myeloid leukaemia
     Route: 048
     Dates: start: 20210426, end: 20210903
  7. RABEPRAZOLE SODIUM [Concomitant]
     Active Substance: RABEPRAZOLE SODIUM
     Indication: Acute myeloid leukaemia
     Route: 048
     Dates: start: 20210426, end: 20210903
  8. PREGABALIN [Concomitant]
     Active Substance: PREGABALIN
     Indication: Acute myeloid leukaemia
     Route: 048
     Dates: start: 20210426, end: 20210903
  9. PREGABALIN [Concomitant]
     Active Substance: PREGABALIN
     Indication: Acute myeloid leukaemia
     Route: 048
     Dates: start: 20210426, end: 20210903
  10. SULFAMETHOXAZOLE AND TRIMETHOPRIM [Concomitant]
     Active Substance: SULFAMETHOXAZOLE\TRIMETHOPRIM
     Indication: Infection prophylaxis
     Route: 048
     Dates: start: 20210218
  11. SULFAMETHOXAZOLE AND TRIMETHOPRIM [Concomitant]
     Active Substance: SULFAMETHOXAZOLE\TRIMETHOPRIM
     Indication: Infection prophylaxis
     Route: 048
     Dates: start: 20210218
  12. PRAVASTATIN SODIUM [Concomitant]
     Active Substance: PRAVASTATIN SODIUM
     Indication: Acute myeloid leukaemia
     Route: 048
     Dates: start: 20210426, end: 20210903
  13. PRAVASTATIN SODIUM [Concomitant]
     Active Substance: PRAVASTATIN SODIUM
     Indication: Acute myeloid leukaemia
     Route: 048
     Dates: start: 20210426, end: 20210903
  14. AZACITIDINE [Suspect]
     Active Substance: AZACITIDINE
     Indication: Acute myeloid leukaemia
     Route: 065
     Dates: start: 20210329, end: 20210715
  15. ITRACONAZOLE [Concomitant]
     Active Substance: ITRACONAZOLE
     Indication: Infection prophylaxis
     Route: 048
     Dates: start: 20210319
  16. ITRACONAZOLE [Concomitant]
     Active Substance: ITRACONAZOLE
     Indication: Infection prophylaxis
     Route: 048
     Dates: start: 20210319
  17. LETROZOLE [Concomitant]
     Active Substance: LETROZOLE
     Indication: Acute myeloid leukaemia
     Route: 048
     Dates: start: 20210426, end: 20210903
  18. LETROZOLE [Concomitant]
     Active Substance: LETROZOLE
     Indication: Acute myeloid leukaemia
     Route: 048
     Dates: start: 20210426, end: 20210903

REACTIONS (1)
  - Allogenic bone marrow transplantation therapy [Recovered/Resolved]

NARRATIVE: CASE EVENT DATE: 20210827
